FAERS Safety Report 4332158-7 (Version None)
Quarter: 2004Q1

REPORT INFORMATION
  Report Type: 
  Country: None (occurrence: None)
  Receive Date: 20040329
  Receipt Date: 20040316
  Transmission Date: 20041129
  Serious: Yes (Other)
  Sender: FDA-Public Use
  Company Number: 2004018997

PATIENT
  Age: 85 Year
  Sex: Female

DRUGS (4)
  1. GLUCOTROL [Suspect]
     Indication: DIABETES MELLITUS
     Dosage: ORAL
     Route: 048
     Dates: start: 20020101, end: 20040101
  2. ACCUPRIL [Suspect]
     Indication: ILL-DEFINED DISORDER
  3. DONEPEZIL HCL [Suspect]
     Indication: ILL-DEFINED DISORDER
     Dosage: 10 MG
     Dates: start: 20040201
  4. SIMVASTATIN [Suspect]
     Indication: ILL-DEFINED DISORDER
     Dosage: ORAL
     Route: 048

REACTIONS (6)
  - BLOOD GLUCOSE INCREASED [None]
  - CARDIAC OPERATION [None]
  - CONFUSIONAL STATE [None]
  - DROOLING [None]
  - HALLUCINATION [None]
  - NAUSEA [None]
